FAERS Safety Report 8321429-5 (Version None)
Quarter: 2012Q2

REPORT INFORMATION
  Report Type: 
  Country: None (occurrence: None)
  Receive Date: 20120430
  Receipt Date: 20120423
  Transmission Date: 20120825
  Serious: Yes (Hospitalization)
  Sender: FDA-Public Use
  Company Number: SK-UCBSA-055966

PATIENT
  Age: 75 Year
  Sex: Female
  Weight: 74 kg

DRUGS (2)
  1. L-DOPA [Concomitant]
     Indication: PARKINSON'S DISEASE
  2. NEUPRO [Suspect]
     Dates: start: 20101116

REACTIONS (1)
  - CONTUSION [None]
